FAERS Safety Report 5605890-2 (Version None)
Quarter: 2008Q1

REPORT INFORMATION
  Report Type: 
  Country: None (occurrence: None)
  Receive Date: 20080125
  Receipt Date: 20080125
  Transmission Date: 20080703
  Serious: Yes (Hospitalization)
  Sender: FDA-Public Use
  Company Number: None

PATIENT
  Age: 48 Year
  Sex: Male
  Weight: 67.59 kg

DRUGS (1)
  1. SIMVASTATIN [Suspect]
     Indication: HYPERLIPIDAEMIA
     Dosage: 40MG HS PO
     Route: 048
     Dates: start: 20070604, end: 20080117

REACTIONS (3)
  - FEELING ABNORMAL [None]
  - HYPERSOMNIA [None]
  - RHABDOMYOLYSIS [None]
